FAERS Safety Report 8022740-8 (Version None)
Quarter: 2012Q1

REPORT INFORMATION
  Report Type: 
  Country: None (occurrence: None)
  Receive Date: 20120104
  Receipt Date: 20111227
  Transmission Date: 20120608
  Serious: Yes (Hospitalization)
  Sender: FDA-Public Use
  Company Number: PHHY2011FR113222

PATIENT
  Sex: Female

DRUGS (7)
  1. SYMBICORT [Concomitant]
  2. BRONCHODUAL [Concomitant]
  3. OMEPRAZOLE [Concomitant]
  4. HAVLANE [Concomitant]
  5. ESCITALOPRAM [Interacting]
     Dosage: 1 DF, QD
     Route: 048
     Dates: start: 20090101, end: 20111130
  6. LEXOMIL [Concomitant]
  7. TEGRETOL [Suspect]
     Dosage: 400 MG, QD
     Route: 048
     Dates: start: 20060101

REACTIONS (5)
  - HYPONATRAEMIA [None]
  - ALCOHOLISM [None]
  - EXTRAPYRAMIDAL DISORDER [None]
  - DRUG INTERACTION [None]
  - CONFUSIONAL STATE [None]
